FAERS Safety Report 6546528-X (Version None)
Quarter: 2010Q1

REPORT INFORMATION
  Report Type: 
  Country: None (occurrence: None)
  Receive Date: 20100122
  Receipt Date: 20100113
  Transmission Date: 20100710
  Serious: Yes (Death)
  Sender: FDA-Public Use
  Company Number: US-BRACCO-003918

PATIENT
  Age: 83 Year
  Sex: Male

DRUGS (2)
  1. ISOVUE-370 [Suspect]
     Indication: CHEST X-RAY ABNORMAL
     Dosage: 3.0 ML/SEC
     Route: 042
     Dates: start: 20090730, end: 20090730
  2. ISOVUE-370 [Suspect]
     Indication: COMPUTERISED TOMOGRAM
     Dosage: 3.0 ML/SEC
     Route: 042
     Dates: start: 20090730, end: 20090730

REACTIONS (3)
  - DEPRESSED LEVEL OF CONSCIOUSNESS [None]
  - FEELING HOT [None]
  - FLUSHING [None]
